FAERS Safety Report 9232745 (Version 1)
Quarter: 2013Q2

REPORT INFORMATION
  Report Type: Spontaneous
  Country: US (occurrence: None)
  Receive Date: 20130415
  Receipt Date: 20130415
  Transmission Date: 20140414
  Serious: No
  Sender: FDA-Public Use
  Company Number: None

PATIENT
  Age: 34 Year
  Sex: Female

DRUGS (1)
  1. ESTRADIOL [Suspect]
     Indication: OESTROGEN DEFICIENCY
     Route: 048
     Dates: start: 20130218, end: 20130302

REACTIONS (2)
  - Product substitution issue [None]
  - Oestrogen deficiency [None]
